FAERS Safety Report 12622460 (Version 1)
Quarter: 2016Q3

REPORT INFORMATION
  Report Type: Spontaneous
  Country: ZA (occurrence: ZA)
  Receive Date: 20160804
  Receipt Date: 20160804
  Transmission Date: 20161109
  Serious: Yes (Other)
  Sender: FDA-Public Use
  Company Number: PHHY2016ZA105935

PATIENT
  Age: 58 Year
  Sex: Female

DRUGS (1)
  1. FEMARA [Suspect]
     Active Substance: LETROZOLE
     Indication: PRODUCT USED FOR UNKNOWN INDICATION
     Dosage: 2.5 MG, QD
     Route: 065

REACTIONS (7)
  - Brain neoplasm [Unknown]
  - Hyperhidrosis [Unknown]
  - Myalgia [Unknown]
  - Dizziness [Unknown]
  - Loss of consciousness [Unknown]
  - General physical condition abnormal [Unknown]
  - Hot flush [Unknown]
